FAERS Safety Report 4689214-3 (Version None)
Quarter: 2005Q2

REPORT INFORMATION
  Report Type: 
  Country: None (occurrence: None)
  Receive Date: 20050608
  Receipt Date: 20050112
  Transmission Date: 20051028
  Serious: No
  Sender: FDA-Public Use
  Company Number: 2005-BP-00877BP

PATIENT
  Age: 74 Year
  Sex: Female

DRUGS (13)
  1. SPIRIVA [Suspect]
     Indication: CHRONIC OBSTRUCTIVE PULMONARY DISEASE
     Dosage: 18 MCG (18 MCG, QD), IH
     Route: 055
     Dates: start: 20041104
  2. MAXAIR [Concomitant]
  3. ACETYLSALICYLIC ACID SRT [Concomitant]
  4. GLUCOSOMINE(GLUCOSAMINE) [Concomitant]
  5. CETRUCIL [Concomitant]
  6. PREMARIN [Concomitant]
  7. DIOVAN [Concomitant]
  8. FOSAMAX [Concomitant]
  9. ZETIA [Concomitant]
  10. ALLEGRA [Concomitant]
  11. RHINOCORT [Concomitant]
  12. FLONASE [Concomitant]
  13. PREVACID [Concomitant]

REACTIONS (2)
  - MYALGIA [None]
  - SWELLING [None]
